FAERS Safety Report 5119935-X (Version None)
Quarter: 2006Q3

REPORT INFORMATION
  Report Type: 
  Country: None (occurrence: None)
  Receive Date: 20060928
  Receipt Date: 20060925
  Transmission Date: 20061208
  Serious: Yes (Hospitalization)
  Sender: FDA-Public Use
  Company Number: TCI2006A04048

PATIENT
  Age: 76 Year
  Sex: Male

DRUGS (2)
  1. LEUPROLIDE ACETATE [Suspect]
     Indication: PROSTATE CANCER
     Dosage: 3.75 MG (3.75 MG, 1 IN 28 D) SUBCUTANEOUS
     Route: 058
     Dates: start: 20050910, end: 20060810
  2. CHLORMADINONE ACETATE TAB [Concomitant]

REACTIONS (2)
  - HEMIPLEGIA [None]
  - INTRACRANIAL VENOUS SINUS THROMBOSIS [None]
